FAERS Safety Report 10934594 (Version 1)
Quarter: 2015Q1

REPORT INFORMATION
  Report Type: Spontaneous
  Country: IN (occurrence: IN)
  Receive Date: 20150320
  Receipt Date: 20150320
  Transmission Date: 20150721
  Serious: Yes (Hospitalization, Other)
  Sender: FDA-Public Use
  Company Number: IN-ROXANE LABORATORIES, INC.-2015-RO-00505RO

PATIENT
  Age: 50 Year
  Sex: Female

DRUGS (1)
  1. DEXAMETHASONE. [Suspect]
     Active Substance: DEXAMETHASONE
     Indication: ARTHROPATHY
     Route: 065

REACTIONS (4)
  - Hip fracture [Unknown]
  - Adrenal insufficiency [Unknown]
  - Adrenocortical insufficiency acute [Recovered/Resolved]
  - Cushingoid [Unknown]
